FAERS Safety Report 13463045 (Version 1)
Quarter: 2017Q2

REPORT INFORMATION
  Report Type: Spontaneous
  Country: US (occurrence: US)
  Receive Date: 20170420
  Receipt Date: 20170420
  Transmission Date: 20170830
  Serious: Yes (Other)
  Sender: FDA-Public Use
  Company Number: US-GILEAD-2017-0267872

PATIENT
  Age: 57 Year
  Sex: Male

DRUGS (2)
  1. RIBAVARIN [Suspect]
     Active Substance: RIBAVIRIN
     Indication: CHRONIC HEPATITIS C
     Dosage: UNK
     Route: 065
  2. SOVALDI [Suspect]
     Active Substance: SOFOSBUVIR
     Indication: CHRONIC HEPATITIS C
     Dosage: UNK
     Route: 065

REACTIONS (4)
  - Metastases to bone [Unknown]
  - Drug ineffective [Unknown]
  - Metastases to spine [Unknown]
  - Hepatocellular carcinoma [Unknown]
